FAERS Safety Report 16719618 (Version 2)
Quarter: 2019Q3

REPORT INFORMATION
  Report Type: Spontaneous
  Country: AU (occurrence: AU)
  Receive Date: 20190820
  Receipt Date: 20190923
  Transmission Date: 20191005
  Serious: No
  Sender: FDA-Public Use
  Company Number: AU-BEH-2019105392

PATIENT
  Age: 70 Year
  Sex: Female

DRUGS (2)
  1. PRIVIGEN [Suspect]
     Active Substance: HUMAN IMMUNOGLOBULIN G
     Indication: NON-HODGKIN^S LYMPHOMA
     Dosage: 10 GRAM, TOT
     Route: 042
     Dates: start: 20190801, end: 20190801
  2. PRIVIGEN [Suspect]
     Active Substance: HUMAN IMMUNOGLOBULIN G
     Indication: PROPHYLAXIS
     Dosage: 30 GRAM, QMT
     Route: 042
     Dates: start: 20190801

REACTIONS (6)
  - Chills [Recovered/Resolved]
  - Heart rate increased [Unknown]
  - Drug hypersensitivity [Unknown]
  - Back pain [Recovered/Resolved]
  - Headache [Recovered/Resolved]
  - Blood pressure increased [Unknown]

NARRATIVE: CASE EVENT DATE: 20190801
